FAERS Safety Report 17064066 (Version 3)
Quarter: 2021Q4

REPORT INFORMATION
  Report Type: Spontaneous
  Country: US (occurrence: US)
  Receive Date: 20191122
  Receipt Date: 20211213
  Transmission Date: 20220303
  Serious: Yes (Other)
  Sender: FDA-Public Use
  Company Number: US-PFIZER INC-2019501774

PATIENT
  Age: 61 Year
  Sex: Female
  Weight: 74.39 kg

DRUGS (8)
  1. IBRANCE [Suspect]
     Active Substance: PALBOCICLIB
     Indication: Breast cancer metastatic
     Dosage: 125 MG
     Route: 048
  2. IBRANCE [Suspect]
     Active Substance: PALBOCICLIB
     Dosage: 75 MG, ONCE DAILY, (1 CAPSULE, 21 DAYS)
     Route: 048
     Dates: start: 20181126
  3. CEFPODOXIME PROXETIL [Concomitant]
     Active Substance: CEFPODOXIME PROXETIL
     Dosage: 100 MG, UNK
  4. BIOTIN [Concomitant]
     Active Substance: BIOTIN
     Dosage: 2500 UG, UNK
  5. FASLODEX [Concomitant]
     Active Substance: FULVESTRANT
     Dosage: 250 MG, UNK
  6. ROGAINE [Concomitant]
     Active Substance: MINOXIDIL
     Dosage: UNK
  7. VANTIN [Concomitant]
     Active Substance: CEFPODOXIME PROXETIL
     Dosage: UNK
  8. LIPITOR [Concomitant]
     Active Substance: ATORVASTATIN CALCIUM
     Indication: Blood cholesterol increased
     Dosage: UNK

REACTIONS (18)
  - Cellulitis [Unknown]
  - Urinary tract infection [Unknown]
  - Blood urine present [Unknown]
  - Tumour marker increased [Unknown]
  - Neutrophil count decreased [Unknown]
  - Gastrointestinal disorder [Unknown]
  - Pyrexia [Unknown]
  - White blood cell count decreased [Unknown]
  - Confusional state [Unknown]
  - Hot flush [Unknown]
  - Feeling abnormal [Unknown]
  - Nausea [Unknown]
  - Abdominal discomfort [Unknown]
  - Infection [Unknown]
  - Gastrooesophageal reflux disease [Unknown]
  - Chest pain [Unknown]
  - Fatigue [Not Recovered/Not Resolved]
  - Sciatica [Not Recovered/Not Resolved]

NARRATIVE: CASE EVENT DATE: 20210101
